FAERS Safety Report 14667637 (Version 3)
Quarter: 2018Q2

REPORT INFORMATION
  Report Type: Spontaneous
  Country: US (occurrence: US)
  Receive Date: 20180322
  Receipt Date: 20180413
  Transmission Date: 20180711
  Serious: No
  Sender: FDA-Public Use
  Company Number: US-PFIZER INC-2018112621

PATIENT
  Age: 64 Year
  Sex: Female
  Weight: 90.7 kg

DRUGS (5)
  1. LYRICA [Suspect]
     Active Substance: PREGABALIN
     Indication: NEUROPATHY PERIPHERAL
     Dosage: 50 MG, 3X/DAY (EVERY 8 HOURS)
  2. LYRICA [Suspect]
     Active Substance: PREGABALIN
     Indication: NEURALGIA
     Dosage: 150 MG, 3X/DAY (EVERY 8 HOURS)
     Dates: start: 201804
  3. CYMBALTA [Concomitant]
     Active Substance: DULOXETINE HYDROCHLORIDE
     Indication: PAIN
     Dosage: UNK
  4. LYRICA [Suspect]
     Active Substance: PREGABALIN
     Indication: NOCARDIOSIS
     Dosage: UNK
     Dates: end: 2013
  5. LYRICA [Suspect]
     Active Substance: PREGABALIN
     Indication: LIMB DISCOMFORT
     Dosage: 150 MG, 3X/DAY, (EVERY 8 HOURS)
     Dates: start: 2014

REACTIONS (10)
  - Insomnia [Unknown]
  - Hypoaesthesia [Recovering/Resolving]
  - Chills [Unknown]
  - Arthralgia [Unknown]
  - Restless legs syndrome [Unknown]
  - Peripheral swelling [Unknown]
  - Joint swelling [Unknown]
  - Peripheral coldness [Not Recovered/Not Resolved]
  - Pain in extremity [Unknown]
  - Paraesthesia [Unknown]

NARRATIVE: CASE EVENT DATE: 2014
